FAERS Safety Report 13172033 (Version 3)
Quarter: 2018Q4

REPORT INFORMATION
  Report Type: Report from Study
  Country: JP (occurrence: JP)
  Receive Date: 20170201
  Receipt Date: 20181022
  Transmission Date: 20190204
  Serious: Yes (Congenital Anomaly)
  Sender: FDA-Public Use
  Company Number: JP-ASTELLAS-2017JP001489

PATIENT
  Sex: Female

DRUGS (8)
  1. MICARDIS [Suspect]
     Active Substance: TELMISARTAN
     Indication: FOETAL EXPOSURE DURING PREGNANCY
     Route: 064
     Dates: end: 20150709
  2. GENTACIN [Suspect]
     Active Substance: GENTAMICIN SULFATE
     Indication: FOETAL EXPOSURE DURING PREGNANCY
     Dosage: UNK UNK, TWICE DAILY
     Route: 064
  3. PL [Suspect]
     Active Substance: ACETAMINOPHEN\CAFFEINE\PROMETHAZINE\SALICYLAMIDE
     Indication: FOETAL EXPOSURE DURING PREGNANCY
     Dosage: 1 G, THRICE DAILY, AFTER EACH MEAL
     Route: 064
  4. MICARDIS [Suspect]
     Active Substance: TELMISARTAN
     Dosage: UNK UNK, UNKNOWN FREQ.
     Route: 064
  5. TACROLIMUS. [Suspect]
     Active Substance: TACROLIMUS
     Indication: FOETAL EXPOSURE DURING PREGNANCY
     Dosage: 3 MG, ONCE DAILY, AFTER BREAKFAST
     Route: 064
     Dates: end: 20160317
  6. GASTER [Suspect]
     Active Substance: FAMOTIDINE
     Indication: FOETAL EXPOSURE DURING PREGNANCY
     Route: 064
     Dates: end: 201509
  7. PERSANTINE [Suspect]
     Active Substance: DIPYRIDAMOLE
     Indication: FOETAL EXPOSURE DURING PREGNANCY
     Route: 064
  8. PREDONINE [Suspect]
     Active Substance: PREDNISOLONE
     Indication: FOETAL EXPOSURE DURING PREGNANCY
     Route: 064
     Dates: end: 20160317

REACTIONS (1)
  - Low birth weight baby [Unknown]
